FAERS Safety Report 9219244 (Version 1)
Quarter: 2013Q1

REPORT INFORMATION
  Report Type: Spontaneous
  Country: US (occurrence: None)
  Receive Date: 20120827
  Receipt Date: 20120827
  Transmission Date: 20140127
  Serious: No
  Sender: FDA-Public Use
  Company Number: 339313

PATIENT
  Age: 55 Year
  Sex: Male
  Weight: 107.9 kg

DRUGS (3)
  1. NOVOLOG FLEXPEN [Suspect]
     Indication: TYPE 2 DIABETES MELLITUS
     Route: 058
  2. NOVOLOG MIX 70/30 FLEXPEN [Suspect]
     Indication: TYPE 2 DIABETES MELLITUS
     Route: 058
     Dates: start: 2007
  3. VICTOZA (LIRAGLUTIDE) SOLUTION FOR INJECTION, 6MG/ML [Concomitant]
     Route: 058

REACTIONS (5)
  - Cheilitis [None]
  - Decreased appetite [None]
  - Weight fluctuation [None]
  - Injection site pain [None]
  - Blood glucose fluctuation [None]
